FAERS Safety Report 18750732 (Version 5)
Quarter: 2021Q3

REPORT INFORMATION
  Report Type: Spontaneous
  Country: US (occurrence: US)
  Receive Date: 20210118
  Receipt Date: 20210713
  Transmission Date: 20211014
  Serious: Yes (Hospitalization, Other)
  Sender: FDA-Public Use
  Company Number: US-GLOBAL BLOOD THERAPEUTICS INC-US-GBT-20-04172

PATIENT
  Age: 26 Year
  Sex: Female

DRUGS (4)
  1. HEPARIN [Concomitant]
     Active Substance: HEPARIN SODIUM
     Indication: PRODUCT USED FOR UNKNOWN INDICATION
     Dosage: NOT PROVIDED
  2. ADAKVEO [Concomitant]
     Active Substance: CRIZANLIZUMAB-TMCA
     Indication: PRODUCT USED FOR UNKNOWN INDICATION
     Dosage: NOT PROVIDED
  3. OXBRYTA [Suspect]
     Active Substance: VOXELOTOR
     Indication: SICKLE CELL DISEASE
     Route: 048
     Dates: start: 20201023
  4. DEFERASIROX. [Concomitant]
     Active Substance: DEFERASIROX
     Indication: PRODUCT USED FOR UNKNOWN INDICATION
     Dosage: NOT PROVIDED

REACTIONS (10)
  - Sickle cell anaemia with crisis [Not Recovered/Not Resolved]
  - Product dose omission issue [Unknown]
  - Feeling abnormal [Unknown]
  - Sickle cell anaemia with crisis [Unknown]
  - Sickle cell anaemia with crisis [Not Recovered/Not Resolved]
  - Therapy cessation [Unknown]
  - Nausea [Unknown]
  - Sickle cell anaemia with crisis [Recovering/Resolving]
  - Pneumonia [Unknown]
  - Sickle cell anaemia with crisis [Unknown]

NARRATIVE: CASE EVENT DATE: 2020
